FAERS Safety Report 8823709 (Version 1)
Quarter: 2012Q4

REPORT INFORMATION
  Report Type: 
  Country: US (occurrence: US)
  Receive Date: 20121003
  Receipt Date: 20121003
  Transmission Date: 20130627
  Serious: No
  Sender: FDA-Public Use
  Company Number: US-ASTRAZENECA-2012SE70727

PATIENT
  Age: 14 Year
  Sex: Female

DRUGS (4)
  1. PULMICORT FLEXHALER [Suspect]
     Route: 055
  2. PULMICORT FLEXHALER [Suspect]
     Route: 055
  3. ADVAIR [Suspect]
     Route: 065
  4. ALBUTEROL [Concomitant]

REACTIONS (4)
  - Chest pain [Unknown]
  - Throat tightness [Unknown]
  - Throat irritation [Unknown]
  - Oral discomfort [Unknown]
